FAERS Safety Report 21095308 (Version 1)
Quarter: 2022Q3

REPORT INFORMATION
  Report Type: Spontaneous
  Country: US (occurrence: US)
  Receive Date: 20220718
  Receipt Date: 20220718
  Transmission Date: 20221027
  Serious: Yes (Other)
  Sender: FDA-Public Use
  Company Number: US-SANOFI-01186346

PATIENT
  Age: 75 Year
  Sex: Female

DRUGS (1)
  1. DUPIXENT [Suspect]
     Active Substance: DUPILUMAB
     Indication: Eczema
     Dosage: 300 MG, QOW
     Dates: start: 2019

REACTIONS (4)
  - Hip fracture [Unknown]
  - Fall [Unknown]
  - Lower limb fracture [Unknown]
  - Rebound eczema [Recovering/Resolving]

NARRATIVE: CASE EVENT DATE: 20201201
